FAERS Safety Report 5526899-3 (Version None)
Quarter: 2007Q4

REPORT INFORMATION
  Report Type: 
  Country: None (occurrence: None)
  Receive Date: 20071127
  Receipt Date: 20071115
  Transmission Date: 20080405
  Serious: Yes (Other)
  Sender: FDA-Public Use
  Company Number: ES-PFIZER INC-2007090716

PATIENT
  Sex: Female
  Weight: 74 kg

DRUGS (6)
  1. PREGABALIN [Suspect]
     Indication: NEURALGIA
     Route: 048
     Dates: start: 20071001, end: 20071001
  2. RIVOTRIL [Concomitant]
     Route: 048
  3. DEPAKENE [Concomitant]
     Route: 048
  4. ORFIDAL [Concomitant]
     Route: 048
  5. PANTOK [Concomitant]
     Route: 048
  6. DIAZEPAM [Concomitant]

REACTIONS (1)
  - BRONCHOSPASM [None]
